FAERS Safety Report 9710649 (Version 1)
Quarter: 2013Q4

REPORT INFORMATION
  Report Type: Spontaneous
  Country: US (occurrence: None)
  Receive Date: 20131125
  Receipt Date: 20131125
  Transmission Date: 20140711
  Serious: Yes (Life-Threatening, Disabling, Other)
  Sender: FDA-Public Use
  Company Number: None

PATIENT
  Age: 76 None
  Sex: Female

DRUGS (16)
  1. FLUCONAZOLE [Suspect]
     Indication: EYE INFECTION FUNGAL
     Dosage: FOR 14 DAYS 1 PER DAY SAME TIME DAILY PINK PILL BY MOUTH
     Route: 048
     Dates: start: 20131024, end: 20131104
  2. NOVOLOG PEN [Concomitant]
  3. LUMIGAN [Concomitant]
  4. POLIGRIP [Concomitant]
  5. VITAMIN C [Concomitant]
  6. VITAMIN A + D [Concomitant]
  7. ALFALFA [Concomitant]
  8. GARLIC [Concomitant]
  9. PICOLINATE [Concomitant]
  10. SENNALEAF [Concomitant]
  11. MULTI ENZYMES [Concomitant]
  12. CAYENNE PEPPER [Concomitant]
  13. NOVOLOG [Concomitant]
  14. LUMIGAN EYE DROPS [Concomitant]
  15. IBUPROFEN [Concomitant]
  16. COQ10 [Concomitant]

REACTIONS (10)
  - Movement disorder [None]
  - Renal pain [None]
  - Respiratory disorder [None]
  - Gingival pain [None]
  - Heart rate irregular [None]
  - Asthenia [None]
  - Nightmare [None]
  - Pain [None]
  - Constipation [None]
  - Impaired healing [None]
